FAERS Safety Report 8612977-9 (Version None)
Quarter: 2012Q3

REPORT INFORMATION
  Report Type: 
  Country: None (occurrence: None)
  Receive Date: 20120822
  Receipt Date: 20120814
  Transmission Date: 20120928
  Serious: Yes (Hospitalization)
  Sender: FDA-Public Use
  Company Number: US-GILEAD-2012-0059779

PATIENT
  Sex: Male

DRUGS (1)
  1. RANEXA [Suspect]
     Indication: PRODUCT USED FOR UNKNOWN INDICATION
     Dosage: 500 MG, UNK
     Route: 048

REACTIONS (7)
  - CHROMATURIA [None]
  - URINE ODOUR ABNORMAL [None]
  - FATIGUE [None]
  - AMPHETAMINES POSITIVE [None]
  - NEPHROLITHIASIS [None]
  - VISION BLURRED [None]
  - UNEVALUABLE EVENT [None]
